FAERS Safety Report 24198913 (Version 1)
Quarter: 2024Q3

REPORT INFORMATION
  Report Type: Spontaneous
  Country: US (occurrence: US)
  Receive Date: 20240812
  Receipt Date: 20240812
  Transmission Date: 20241016
  Serious: No
  Sender: SANOFI AVENTIS
  Company Number: US-SA-SAC20240808000456

PATIENT
  Age: 20 Year
  Sex: Male
  Weight: 55.247 kg

DRUGS (1)
  1. DUPIXENT [Suspect]
     Active Substance: DUPILUMAB
     Dosage: 600 MG, 1X
     Route: 058
     Dates: start: 20240725, end: 20240725

REACTIONS (7)
  - Sleep disorder due to a general medical condition [Unknown]
  - Skin haemorrhage [Unknown]
  - Skin fissures [Unknown]
  - Dry skin [Unknown]
  - Scratch [Unknown]
  - Pruritus [Unknown]
  - Skin exfoliation [Unknown]

NARRATIVE: CASE EVENT DATE: 20240701
